FAERS Safety Report 15647747 (Version 1)
Quarter: 2018Q4

REPORT INFORMATION
  Report Type: Spontaneous
  Country: RU (occurrence: RU)
  Receive Date: 20181122
  Receipt Date: 20181122
  Transmission Date: 20190205
  Serious: Yes (Hospitalization)
  Sender: FDA-Public Use
  Company Number: RU-ASTRAZENECA-2018SE38401

PATIENT
  Age: 55 Year
  Sex: Male
  Weight: 81 kg

DRUGS (6)
  1. ATORVASTATIN [Concomitant]
     Active Substance: ATORVASTATIN
  2. BRILINTA [Suspect]
     Active Substance: TICAGRELOR
     Indication: MYOCARDIAL INFARCTION
     Route: 048
     Dates: start: 201705
  3. ASA [Suspect]
     Active Substance: ASPIRIN
     Route: 048
  4. ASA [Suspect]
     Active Substance: ASPIRIN
     Route: 048
     Dates: start: 201805
  5. PANTOPRAZOLE [Concomitant]
     Active Substance: PANTOPRAZOLE
  6. INSULIN [Concomitant]
     Active Substance: INSULIN NOS

REACTIONS (4)
  - Epistaxis [Recovered/Resolved]
  - Intentional product misuse [Not Recovered/Not Resolved]
  - Vascular stent occlusion [Recovered/Resolved]
  - Off label use [Unknown]

NARRATIVE: CASE EVENT DATE: 2017
